FAERS Safety Report 7041596-3 (Version None)
Quarter: 2010Q4

REPORT INFORMATION
  Report Type: 
  Country: None (occurrence: None)
  Receive Date: 20101013
  Receipt Date: 20100312
  Transmission Date: 20110411
  Serious: No
  Sender: FDA-Public Use
  Company Number: US-ASTRAZENECA-2010SE10901

PATIENT
  Sex: Female

DRUGS (2)
  1. SYMBICORT [Suspect]
     Dosage: 1 PUFF
     Route: 055
  2. SYMBICORT [Suspect]
     Dosage: 4 PUFFS
     Route: 055
     Dates: start: 20100312

REACTIONS (2)
  - INTENTIONAL DRUG MISUSE [None]
  - OEDEMA PERIPHERAL [None]
